FAERS Safety Report 9802309 (Version 2)
Quarter: 2014Q1

REPORT INFORMATION
  Report Type: Report from Study
  Country: DE (occurrence: DE)
  Receive Date: 20140107
  Receipt Date: 20140107
  Transmission Date: 20141002
  Serious: Yes (Other)
  Sender: FDA-Public Use
  Company Number: DE-BAXTER-2013BAX040259

PATIENT
  Age: 1 Year
  Sex: Male
  Weight: 13.1 kg

DRUGS (4)
  1. ADVATE 250 I.E. [Suspect]
     Indication: PROPHYLAXIS
     Route: 065
     Dates: start: 20130416, end: 20130527
  2. ADVATE 250 I.E. [Suspect]
     Indication: FACTOR VIII DEFICIENCY
  3. ADVATE 250 I.E. [Suspect]
     Indication: SURGERY
     Route: 065
     Dates: start: 20120526
  4. FEIBA [Suspect]
     Indication: PRODUCT USED FOR UNKNOWN INDICATION
     Route: 065

REACTIONS (2)
  - Factor VIII inhibition [Not Recovered/Not Resolved]
  - Device related infection [Unknown]
